FAERS Safety Report 5153565-9 (Version None)
Quarter: 2006Q4

REPORT INFORMATION
  Report Type: 
  Country: None (occurrence: None)
  Receive Date: 20061117
  Receipt Date: 20061107
  Transmission Date: 20070319
  Serious: Yes (Hospitalization)
  Sender: FDA-Public Use
  Company Number: US-ABBOTT-06P-163-0349694-00

PATIENT
  Age: 18 Year
  Sex: Female

DRUGS (13)
  1. RITONAVIR SOFT GELATIN CAPSULES [Suspect]
     Indication: HIV INFECTION
     Route: 048
  2. RITONAVIR ORAL SOLUTION [Suspect]
     Indication: HIV INFECTION
  3. APTIVUS [Suspect]
     Indication: HIV INFECTION
     Route: 048
  4. FUZEON [Concomitant]
     Indication: HIV INFECTION
  5. FUZEON [Concomitant]
     Indication: ACQUIRED IMMUNODEFICIENCY SYNDROME
  6. ZIDOVUDINE [Concomitant]
     Indication: HIV INFECTION
  7. ZIDOVUDINE [Concomitant]
     Indication: ACQUIRED IMMUNODEFICIENCY SYNDROME
  8. LAMIVUDINE [Concomitant]
     Indication: HIV INFECTION
  9. LAMIVUDINE [Concomitant]
     Indication: ACQUIRED IMMUNODEFICIENCY SYNDROME
  10. TENOFOVIR [Concomitant]
     Indication: HIV INFECTION
  11. TENOFOVIR [Concomitant]
     Indication: ACQUIRED IMMUNODEFICIENCY SYNDROME
  12. PHENYTOIN SODIUM [Concomitant]
     Indication: CONVULSION
  13. PHENOBARBITAL TAB [Concomitant]
     Indication: CONVULSION

REACTIONS (2)
  - DYSPHAGIA [None]
  - MENTAL STATUS CHANGES [None]
